FAERS Safety Report 8835105 (Version 1)
Quarter: 2012Q4

REPORT INFORMATION
  Report Type: 
  Country: US (occurrence: US)
  Receive Date: 20121011
  Receipt Date: 20121011
  Transmission Date: 20130627
  Serious: Yes (Other)
  Sender: FDA-Public Use
  Company Number: US-FRI-1000039274

PATIENT
  Sex: Female

DRUGS (1)
  1. VIIBRYD [Suspect]
     Dosage: 20 mg
     Route: 048

REACTIONS (1)
  - Suicidal ideation [Unknown]
